FAERS Safety Report 13988839 (Version 2)
Quarter: 2017Q4

REPORT INFORMATION
  Report Type: Spontaneous
  Country: CH (occurrence: CH)
  Receive Date: 20170919
  Receipt Date: 20171003
  Transmission Date: 20180321
  Serious: Yes (Hospitalization)
  Sender: FDA-Public Use
  Company Number: CH-TEVA-805699ISR

PATIENT
  Age: 67 Year
  Sex: Male

DRUGS (2)
  1. CO-VALTAN-MEPHA FILMTABLETTEN [Suspect]
     Active Substance: HYDROCHLOROTHIAZIDE\VALSARTAN
     Indication: HYPERTENSION
     Dosage: DOSE FORM= 80/12.5 MG
     Route: 048
     Dates: start: 2015
  2. METFORMIN-MEPHA LACTAB [Suspect]
     Active Substance: METFORMIN HYDROCHLORIDE
     Indication: TYPE 2 DIABETES MELLITUS
     Route: 048
     Dates: start: 2015

REACTIONS (3)
  - Blood uric acid increased [Recovered/Resolved]
  - Urine uric acid increased [Unknown]
  - Calculus urinary [Recovered/Resolved]

NARRATIVE: CASE EVENT DATE: 2017
